FAERS Safety Report 7443413-6 (Version None)
Quarter: 2011Q2

REPORT INFORMATION
  Report Type: 
  Country: None (occurrence: None)
  Receive Date: 20110428
  Receipt Date: 20110426
  Transmission Date: 20111010
  Serious: Yes (Other)
  Sender: FDA-Public Use
  Company Number: US-PFIZER INC-2011090752

PATIENT
  Sex: Female
  Weight: 61 kg

DRUGS (5)
  1. ROBAXIN [Concomitant]
     Dosage: 750 MG, EVERY 3 HOURS
     Route: 048
  2. SINGULAIR [Concomitant]
     Dosage: UNK
     Route: 048
  3. CALAN [Suspect]
     Indication: MITRAL VALVE PROLAPSE
     Dosage: 120 MG, 1X/DAY
     Route: 048
  4. AMITRIPTYLINE [Concomitant]
     Dosage: 50 MG, 1X/DAY AT NIGHT
  5. HYOSCYAMINE [Concomitant]
     Indication: ABDOMINAL DISCOMFORT
     Dosage: UNK

REACTIONS (4)
  - LIGAMENT OPERATION [None]
  - JAW OPERATION [None]
  - INTERVERTEBRAL DISC OPERATION [None]
  - GALLBLADDER OPERATION [None]
